FAERS Safety Report 5475458-X (Version None)
Quarter: 2007Q3

REPORT INFORMATION
  Report Type: 
  Country: None (occurrence: None)
  Receive Date: 20070917
  Receipt Date: 20070706
  Transmission Date: 20080115
  Serious: Yes (Other)
  Sender: FDA-Public Use
  Company Number: 07-001456

PATIENT
  Age: 36 Year
  Sex: Female
  Weight: 56.2 kg

DRUGS (3)
  1. LOESTRIN 24 FE [Suspect]
     Indication: DYSMENORRHOEA
     Dosage: 20/1000 UG, QD, ORAL
     Route: 048
     Dates: start: 20060101
  2. LOESTRIN 24 FE [Suspect]
     Indication: MENORRHAGIA
     Dosage: 20/1000 UG, QD, ORAL
     Route: 048
     Dates: start: 20060101
  3. YASMIN [Concomitant]

REACTIONS (3)
  - AMENORRHOEA [None]
  - METRORRHAGIA [None]
  - SMEAR CERVIX ABNORMAL [None]
